FAERS Safety Report 26159972 (Version 1)
Quarter: 2025Q4

REPORT INFORMATION
  Report Type: Spontaneous
  Country: US (occurrence: US)
  Receive Date: 20251216
  Receipt Date: 20251216
  Transmission Date: 20260118
  Serious: No
  Sender: TOLMAR
  Company Number: US-Tolmar-TLM-2025-09340

PATIENT

DRUGS (3)
  1. ELIGARD [Suspect]
     Active Substance: LEUPROLIDE ACETATE
     Indication: Prostate cancer
     Dosage: EXPIRATION DATES: MAY-2026; JUL-2026; MAY-2026?GTIN (GLOBAL TRADE ITEM NUMBER): 00362935227106?SN: 2
  2. ELIGARD [Suspect]
     Active Substance: LEUPROLIDE ACETATE
     Dosage: REPLACEMENT DOSE
  3. DEVICE [Suspect]
     Active Substance: DEVICE
     Indication: Prostate cancer
     Dosage: EXPIRATION DATES: MAY-2026; JUL-2026; MAY-2026?GTIN (GLOBAL TRADE ITEM NUMBER): 00362935227106?SN: 2

REACTIONS (2)
  - Intercepted product preparation error [Unknown]
  - Device malfunction [Unknown]
